FAERS Safety Report 11310501 (Version 2)
Quarter: 2015Q3

REPORT INFORMATION
  Report Type: Report from Study
  Country: US (occurrence: US)
  Receive Date: 20150724
  Receipt Date: 20150825
  Transmission Date: 20151125
  Serious: Yes (Hospitalization)
  Sender: FDA-Public Use
  Company Number: US-ACTELION-A-NJ2015-113302

PATIENT
  Age: 22 Year
  Sex: Male

DRUGS (19)
  1. VELETRI [Suspect]
     Active Substance: EPOPROSTENOL
     Dosage: 11 NG/KG, PER MIN
     Route: 042
     Dates: start: 20150123
  2. OPSUMIT [Suspect]
     Active Substance: MACITENTAN
     Indication: PULMONARY ARTERIAL HYPERTENSION
     Dosage: 10 MG, QD
     Route: 048
     Dates: start: 20131127
  3. OMEPRAZOLE. [Concomitant]
     Active Substance: OMEPRAZOLE
  4. GABAPENTIN. [Concomitant]
     Active Substance: GABAPENTIN
     Dosage: UNK
  5. DOXYCYCLINE. [Concomitant]
     Active Substance: DOXYCYCLINE
     Dosage: UNK
  6. KLONOPIN [Concomitant]
     Active Substance: CLONAZEPAM
  7. PAXIL [Concomitant]
     Active Substance: PAROXETINE HYDROCHLORIDE
     Dosage: UNK
  8. CYMBALTA [Concomitant]
     Active Substance: DULOXETINE HYDROCHLORIDE
     Dosage: UNK
  9. VELETRI [Suspect]
     Active Substance: EPOPROSTENOL
     Indication: PULMONARY ARTERIAL HYPERTENSION
     Dosage: 17 NG/KG, PER MIN
     Route: 042
     Dates: start: 20150114
  10. LOPERAMIDE [Concomitant]
     Active Substance: LOPERAMIDE
     Dosage: UNK
  11. RANITIDINE [Concomitant]
     Active Substance: RANITIDINE\RANITIDINE HYDROCHLORIDE
     Dosage: UNK
  12. MIDODRINE [Concomitant]
     Active Substance: MIDODRINE
     Dosage: UNK
  13. VELETRI [Suspect]
     Active Substance: EPOPROSTENOL
     Dosage: 10.5 NG/KG, PER MIN
     Route: 042
  14. DILAUDID [Concomitant]
     Active Substance: HYDROMORPHONE HYDROCHLORIDE
     Dosage: UNK
  15. OXYCONTIN [Concomitant]
     Active Substance: OXYCODONE HYDROCHLORIDE
     Dosage: UNK
  16. KLOR-CON [Concomitant]
     Active Substance: POTASSIUM CHLORIDE
     Dosage: UNK
  17. SILDENAFIL. [Concomitant]
     Active Substance: SILDENAFIL
     Dosage: UNK
  18. XARELTO [Concomitant]
     Active Substance: RIVAROXABAN
     Dosage: UNK
  19. TORSEMIDE. [Concomitant]
     Active Substance: TORSEMIDE
     Dosage: UNK

REACTIONS (13)
  - Hyperhidrosis [Recovering/Resolving]
  - Hot flush [Recovering/Resolving]
  - Blood pressure decreased [Recovering/Resolving]
  - Vomiting [Recovering/Resolving]
  - Cough [Unknown]
  - Flushing [Recovering/Resolving]
  - Heart rate increased [Recovering/Resolving]
  - Dyspnoea [Recovering/Resolving]
  - Fluid retention [Unknown]
  - Fluid overload [Not Recovered/Not Resolved]
  - Oxygen saturation abnormal [Unknown]
  - Pain [Unknown]
  - Nausea [Recovering/Resolving]

NARRATIVE: CASE EVENT DATE: 20150209
